FAERS Safety Report 13513093 (Version 3)
Quarter: 2018Q4

REPORT INFORMATION
  Report Type: Spontaneous
  Country: CL (occurrence: CL)
  Receive Date: 20170504
  Receipt Date: 20181004
  Transmission Date: 20190204
  Serious: Yes (Other)
  Sender: FDA-Public Use
  Company Number: CL-BIOMARINAP-CL-2017-113845

PATIENT
  Age: 18 Year
  Sex: Female
  Weight: 30 kg

DRUGS (1)
  1. ALDURAZYME [Suspect]
     Active Substance: LARONIDASE
     Indication: MUCOPOLYSACCHARIDOSIS I
     Dosage: UNK, QOW
     Route: 041

REACTIONS (3)
  - Mobility decreased [Recovering/Resolving]
  - Product use issue [Unknown]
  - Arthralgia [Recovering/Resolving]
